FAERS Safety Report 4388132-8 (Version None)
Quarter: 2004Q3

REPORT INFORMATION
  Report Type: 
  Country: None (occurrence: None)
  Receive Date: 20040701
  Receipt Date: 20040622
  Transmission Date: 20050211
  Serious: Yes (Other)
  Sender: FDA-Public Use
  Company Number: US-BRISTOL-MYERS SQUIBB COMPANY-12622536

PATIENT
  Sex: Female

DRUGS (1)
  1. EXCEDRIN (MIGRAINE) [Suspect]
     Indication: MIGRAINE
     Dosage: 1 CAP + THEN 2 CAPS 2 HRS LATER. 2 MORE CAPS 2 HRS LATER ^THROUGHOUT THE NITE^
     Route: 048
     Dates: start: 20020101

REACTIONS (1)
  - MYOCARDIAL INFARCTION [None]
